FAERS Safety Report 14242336 (Version 1)
Quarter: 2017Q4

REPORT INFORMATION
  Report Type: Spontaneous
  Country: US (occurrence: US)
  Receive Date: 20171130
  Receipt Date: 20171130
  Transmission Date: 20180321
  Serious: Yes (Other)
  Sender: FDA-Public Use
  Company Number: None

PATIENT
  Age: 23 Year
  Sex: Female
  Weight: 49.05 kg

DRUGS (1)
  1. NEXPLANON [Suspect]
     Active Substance: ETONOGESTREL
     Indication: CONTRACEPTION
     Dosage: 68 MG SUBDERMAL
     Route: 059
     Dates: start: 20171103, end: 20171103

REACTIONS (3)
  - Premature baby [None]
  - Suppressed lactation [None]
  - Exposure during pregnancy [None]

NARRATIVE: CASE EVENT DATE: 20171103
